FAERS Safety Report 9421859 (Version 1)
Quarter: 2013Q3

REPORT INFORMATION
  Report Type: Spontaneous
  Country: US (occurrence: None)
  Receive Date: 20130724
  Receipt Date: 20130724
  Transmission Date: 20140515
  Serious: Yes (Disabling)
  Sender: FDA-Public Use
  Company Number: None

PATIENT
  Sex: Male
  Weight: 86.18 kg

DRUGS (1)
  1. VELCADE [Suspect]
     Indication: PLASMA CELL MYELOMA
     Dates: start: 20130212, end: 20130215

REACTIONS (5)
  - Hypoaesthesia [None]
  - Hypoaesthesia [None]
  - Pain in extremity [None]
  - Rash [None]
  - Pain in extremity [None]
